FAERS Safety Report 9031236 (Version 1)
Quarter: 2013Q1

REPORT INFORMATION
  Report Type: Spontaneous
  Country: IT (occurrence: IT)
  Receive Date: 20130123
  Receipt Date: 20130123
  Transmission Date: 20140127
  Serious: Yes (Other)
  Sender: FDA-Public Use
  Company Number: IT-PFIZER INC-2013027202

PATIENT
  Age: 43 Year
  Sex: Female

DRUGS (3)
  1. XANAX [Suspect]
     Dosage: 15 MG, SINGLE
     Route: 048
     Dates: start: 20121217, end: 20121217
  2. TAVOR [Suspect]
     Dosage: 25 MG, SINGLE
     Route: 048
     Dates: start: 20121217, end: 20121217
  3. VALDORM [Suspect]
     Dosage: 225 UG, SINGLE
     Route: 048
     Dates: start: 20121217, end: 20121217

REACTIONS (3)
  - Bradyphrenia [Recovering/Resolving]
  - Somnolence [Recovering/Resolving]
  - Toxicity to various agents [Recovering/Resolving]
